FAERS Safety Report 12297849 (Version 1)
Quarter: 2016Q2

REPORT INFORMATION
  Report Type: Spontaneous
  Country: ES (occurrence: ES)
  Receive Date: 20160422
  Receipt Date: 20160422
  Transmission Date: 20160815
  Serious: Yes (Hospitalization)
  Sender: FDA-Public Use
  Company Number: ES-PFIZER INC-2016220860

PATIENT
  Age: 59 Year
  Sex: Male

DRUGS (7)
  1. FLUCONAZOLE. [Concomitant]
     Active Substance: FLUCONAZOLE
     Indication: FUNGAL INFECTION
     Dosage: 400 MG/12H
     Route: 042
     Dates: start: 20150311, end: 20150319
  2. PANTOPRAZOLE [Concomitant]
     Active Substance: PANTOPRAZOLE SODIUM
     Indication: PROPHYLAXIS AGAINST GASTROINTESTINAL ULCER
     Dosage: 1 AMP
     Route: 042
     Dates: start: 20150227
  3. TAZOCEL [Suspect]
     Active Substance: PIPERACILLIN SODIUM\TAZOBACTAM SODIUM
     Indication: RESPIRATORY TRACT INFECTION
     Dosage: 4 G/8H
     Route: 042
     Dates: start: 20150311, end: 20150324
  4. ESCITALOPRAM [Concomitant]
     Active Substance: ESCITALOPRAM OXALATE
     Indication: DEPRESSION
     Dosage: 10 MG, 1X/DAY
     Route: 048
     Dates: start: 201409
  5. IMUREL /00001501/ [Interacting]
     Active Substance: AZATHIOPRINE SODIUM
     Indication: COLITIS ULCERATIVE
     Dosage: 150 MG, 1X/DAY (3 TABLETS OF 50 MG IN MORNINGS)
     Route: 048
     Dates: start: 201403, end: 20150323
  6. ENOXAPARIN [Concomitant]
     Active Substance: ENOXAPARIN
     Indication: THROMBOSIS PROPHYLAXIS
     Dosage: 60 MG
     Route: 058
     Dates: start: 20150227
  7. METHYLPREDNISOLONE. [Concomitant]
     Active Substance: METHYLPREDNISOLONE
     Indication: BRONCHOSPASM
     Dosage: 40 MG/8H (IN DESCREASING DOSE SCHEDULE)
     Route: 048
     Dates: start: 20150227

REACTIONS (3)
  - Drug interaction [Recovered/Resolved]
  - Neutropenia [Recovered/Resolved]
  - Leukopenia [Recovered/Resolved]

NARRATIVE: CASE EVENT DATE: 20150323
